FAERS Safety Report 7493767-X (Version None)
Quarter: 2011Q2

REPORT INFORMATION
  Report Type: 
  Country: None (occurrence: None)
  Receive Date: 20110520
  Receipt Date: 20110210
  Transmission Date: 20111010
  Serious: Yes (Hospitalization)
  Sender: FDA-Public Use
  Company Number: US-ASTRAZENECA-2011SE03391

PATIENT
  Age: 15452 Day
  Sex: Female
  Weight: 114.3 kg

DRUGS (1)
  1. VIMOVO [Suspect]
     Indication: PHLEBITIS
     Dosage: 500 MG+20 MG TWO TIMES A DAY
     Route: 048
     Dates: start: 20110110, end: 20110110

REACTIONS (3)
  - RASH [None]
  - HYPERSENSITIVITY [None]
  - PHARYNGEAL OEDEMA [None]
